FAERS Safety Report 6589568-7 (Version None)
Quarter: 2010Q1

REPORT INFORMATION
  Report Type: 
  Country: None (occurrence: None)
  Receive Date: 20100212
  Receipt Date: 20100128
  Transmission Date: 20100710
  Serious: No
  Sender: FDA-Public Use
  Company Number: 2009SP002952

PATIENT
  Sex: Female

DRUGS (2)
  1. OMNARIS [Suspect]
     Indication: RHINITIS
     Dosage: NASAL
     Route: 045
  2. LOSARTAN POTASSIUM [Concomitant]

REACTIONS (4)
  - HEADACHE [None]
  - HYPERSENSITIVITY [None]
  - MALAISE [None]
  - RESPIRATORY ARREST [None]
